FAERS Safety Report 6733857-X (Version None)
Quarter: 2010Q2

REPORT INFORMATION
  Report Type: 
  Country: None (occurrence: None)
  Receive Date: 20100520
  Receipt Date: 20100518
  Transmission Date: 20101027
  Serious: Yes (Other)
  Sender: FDA-Public Use
  Company Number: US-WYE-H12823610

PATIENT
  Sex: Female
  Weight: 54.03 kg

DRUGS (3)
  1. IBUPROFEN (ADVIL) [Suspect]
     Indication: HEADACHE
     Dosage: 1 LIQUI-GEL X 1
     Route: 048
     Dates: start: 20091224, end: 20091224
  2. ATENOLOL [Concomitant]
     Indication: HYPERTENSION
     Dosage: UNKNOWN
     Route: 048
  3. XANAX [Concomitant]
     Dosage: UNKNOWN
     Route: 048

REACTIONS (7)
  - DYSPNOEA [None]
  - ERYTHEMA [None]
  - HYPERSENSITIVITY [None]
  - LIP SWELLING [None]
  - RASH MACULAR [None]
  - SWOLLEN TONGUE [None]
  - URTICARIA [None]
